FAERS Safety Report 6911521-1 (Version None)
Quarter: 2010Q3

REPORT INFORMATION
  Report Type: 
  Country: None (occurrence: None)
  Receive Date: 20100806
  Receipt Date: 20100726
  Transmission Date: 20110219
  Serious: Yes (Hospitalization)
  Sender: FDA-Public Use
  Company Number: US-BAYER-201026017NA

PATIENT
  Age: 34 Year
  Sex: Female
  Weight: 82 kg

DRUGS (1)
  1. MIRENA [Suspect]
     Indication: CONTRACEPTION
     Dosage: FREQUENCY: CONTINUOUS
     Route: 015
     Dates: start: 20100610, end: 20100617

REACTIONS (3)
  - ABDOMINAL PAIN [None]
  - MUSCLE SPASMS [None]
  - UTERINE PERFORATION [None]
